FAERS Safety Report 24434660 (Version 4)
Quarter: 2024Q4

REPORT INFORMATION
  Report Type: Spontaneous
  Country: GR (occurrence: GR)
  Receive Date: 20241014
  Receipt Date: 20241217
  Transmission Date: 20250115
  Serious: No
  Sender: PFIZER
  Company Number: GR-PFIZER INC-PV202400131085

PATIENT
  Age: 13 Year
  Sex: Female
  Weight: 38 kg

DRUGS (4)
  1. GENOTROPIN [Suspect]
     Active Substance: SOMATROPIN
     Indication: Growth hormone deficiency
     Dosage: UNK
     Route: 058
     Dates: start: 202407
  2. ARIMIDEX [Concomitant]
     Active Substance: ANASTROZOLE
     Dosage: EVENING
  3. VITAMIN D NOS [Concomitant]
     Active Substance: CHOLECALCIFEROL\ERGOCALCIFEROL
     Dosage: MORNING
  4. VITAMIN B3 [Concomitant]
     Active Substance: NIACIN
     Dosage: MORNING

REACTIONS (3)
  - Device physical property issue [Unknown]
  - Device leakage [Unknown]
  - Drug dose omission by device [Unknown]
